FAERS Safety Report 10230433 (Version 2)
Quarter: 2014Q2

REPORT INFORMATION
  Report Type: Spontaneous
  Country: US (occurrence: US)
  Receive Date: 20140611
  Receipt Date: 20140611
  Transmission Date: 20141212
  Serious: No
  Sender: FDA-Public Use
  Company Number: US-INCYTE CORPORATION-2014IN000638

PATIENT
  Age: 65 Year
  Sex: Male

DRUGS (3)
  1. JAKAFI [Suspect]
     Indication: MYELOFIBROSIS
     Dosage: 20 MG, BID
     Route: 048
     Dates: start: 20140129
  2. ALLOPURINOL [Suspect]
     Indication: GOUT
     Dosage: UNK
     Dates: start: 20140219
  3. ULORIC [Concomitant]
     Indication: GOUT

REACTIONS (3)
  - Influenza like illness [Unknown]
  - Arthralgia [Unknown]
  - Headache [Recovered/Resolved]
